FAERS Safety Report 7705319-4 (Version None)
Quarter: 2011Q3

REPORT INFORMATION
  Report Type: 
  Country: None (occurrence: None)
  Receive Date: 20110823
  Receipt Date: 20110823
  Transmission Date: 20111222
  Serious: Yes (Hospitalization)
  Sender: FDA-Public Use
  Company Number: None

PATIENT
  Sex: Female
  Weight: 70.5 kg

DRUGS (2)
  1. CARBOPLATIN [Suspect]
     Dosage: 703 MG
     Dates: end: 20110705
  2. DOCETAXEL [Suspect]
     Dosage: 104 MG
     Dates: end: 20110705

REACTIONS (6)
  - SINUS TACHYCARDIA [None]
  - SEPSIS [None]
  - DRUG INTOLERANCE [None]
  - UROSEPSIS [None]
  - ASTHENIA [None]
  - BLOOD PRESSURE DECREASED [None]
